FAERS Safety Report 5066963-9 (Version None)
Quarter: 2006Q3

REPORT INFORMATION
  Report Type: 
  Country: None (occurrence: None)
  Receive Date: 20060726
  Receipt Date: 20060713
  Transmission Date: 20061208
  Serious: Yes (Other)
  Sender: FDA-Public Use
  Company Number: 2006087600

PATIENT
  Sex: Female

DRUGS (3)
  1. DETROL LA [Suspect]
     Indication: DRUG USE FOR UNKNOWN INDICATION
     Dosage: 4 MG (4 MG, 1 IN 1 D)
     Dates: start: 20040101
  2. ZESTRIL [Concomitant]
  3. LOPRESSOR [Concomitant]

REACTIONS (2)
  - DRUG INEFFECTIVE [None]
  - GLAUCOMA [None]
